FAERS Safety Report 13127292 (Version 1)
Quarter: 2017Q1

REPORT INFORMATION
  Report Type: Spontaneous
  Country: US (occurrence: US)
  Receive Date: 20170118
  Receipt Date: 20170118
  Transmission Date: 20170428
  Serious: No
  Sender: FDA-Public Use
  Company Number: US-ROCHE-1715094

PATIENT
  Age: 78 Year
  Sex: Male

DRUGS (3)
  1. RITUXAN [Suspect]
     Active Substance: RITUXIMAB
     Indication: LYMPHOMA
     Dosage: 100 MG/10ML
     Route: 042
  2. LOSARTAN. [Concomitant]
     Active Substance: LOSARTAN
     Indication: HYPERTENSION
     Route: 065
  3. LATANOPROST. [Concomitant]
     Active Substance: LATANOPROST
     Indication: GLAUCOMA
     Route: 065

REACTIONS (7)
  - Fall [Unknown]
  - Haematoma [Unknown]
  - Fatigue [Unknown]
  - Fear [Unknown]
  - Insomnia [Unknown]
  - Nightmare [Unknown]
  - Nightmare [Unknown]

NARRATIVE: CASE EVENT DATE: 201602
